FAERS Safety Report 9544163 (Version 1)
Quarter: 2013Q3

REPORT INFORMATION
  Report Type: Spontaneous
  Country: GB (occurrence: GB)
  Receive Date: 20130923
  Receipt Date: 20130923
  Transmission Date: 20140515
  Serious: Yes (Life-Threatening, Disabling, Other)
  Sender: FDA-Public Use
  Company Number: PHHY2013GB104880

PATIENT
  Age: 46 Year
  Sex: Male
  Weight: 98 kg

DRUGS (4)
  1. VENLAFAXINE [Suspect]
     Indication: DEPRESSION
     Dosage: 225 MG
     Route: 048
     Dates: start: 2010, end: 2012
  2. VENLAFAXINE [Suspect]
     Dosage: UNK DOSE REDUCED
  3. CABERGOLINE [Concomitant]
  4. CODEINE [Concomitant]

REACTIONS (6)
  - Depression [Not Recovered/Not Resolved]
  - Gait disturbance [Recovering/Resolving]
  - Dysstasia [Recovering/Resolving]
  - Pain in extremity [Recovering/Resolving]
  - Pain [Unknown]
  - Withdrawal syndrome [Unknown]
